FAERS Safety Report 12857619 (Version 2)
Quarter: 2016Q4

REPORT INFORMATION
  Report Type: Spontaneous
  Country: None (occurrence: US)
  Receive Date: 20161018
  Receipt Date: 20161026
  Transmission Date: 20170207
  Serious: No
  Sender: FDA-Public Use
  Company Number: US-RARE DISEASE THERAPEUTICS, INC.-1058476

PATIENT
  Age: 7 Year
  Sex: Male
  Weight: 25.85 kg

DRUGS (11)
  1. MIRALAX [Concomitant]
     Active Substance: POLYETHYLENE GLYCOL 3350
  2. RANITIDINE. [Concomitant]
     Active Substance: RANITIDINE
  3. CYSTADANE [Suspect]
     Active Substance: BETAINE
     Indication: METHYLENETETRAHYDROFOLATE REDUCTASE DEFICIENCY
     Dates: start: 20140722
  4. PHENOBARBITAL. [Concomitant]
     Active Substance: PHENOBARBITAL
  5. LEVOCARNITINE. [Concomitant]
     Active Substance: LEVOCARNITINE
  6. VITAMIN B6 [Concomitant]
     Active Substance: PYRIDOXINE HYDROCHLORIDE
  7. FOLIC ACID. [Concomitant]
     Active Substance: FOLIC ACID
  8. LEVETIRACETAM. [Concomitant]
     Active Substance: LEVETIRACETAM
  9. VITAMIN B12 [Concomitant]
     Active Substance: CYANOCOBALAMIN
  10. CLONAZEPAM. [Concomitant]
     Active Substance: CLONAZEPAM
  11. TENEX [Concomitant]
     Active Substance: GUANFACINE HYDROCHLORIDE

REACTIONS (2)
  - Impetigo [Not Recovered/Not Resolved]
  - Overdose [None]

NARRATIVE: CASE EVENT DATE: 20160930
